FAERS Safety Report 6887308-5 (Version None)
Quarter: 2010Q3

REPORT INFORMATION
  Report Type: 
  Country: None (occurrence: None)
  Receive Date: 20100730
  Receipt Date: 20090625
  Transmission Date: 20110219
  Serious: No
  Sender: FDA-Public Use
  Company Number: A0793792A

PATIENT
  Age: 50 Year
  Sex: Female

DRUGS (21)
  1. SUMATRIPTAN SUCCINATE [Suspect]
     Indication: MIGRAINE
     Dosage: 100MG TWICE PER DAY
     Route: 048
     Dates: start: 20090201
  2. NAPROXEN [Concomitant]
  3. IBUPROFEN [Concomitant]
  4. MAGNESIUM [Concomitant]
  5. STOOL SOFTENER [Concomitant]
  6. FLEXERIL [Concomitant]
  7. CO Q 10 [Concomitant]
  8. NEURONTIN [Concomitant]
  9. WELLBUTRIN [Concomitant]
  10. IRON SUPPLEMENT [Concomitant]
  11. EFFEXOR [Concomitant]
  12. LIPITOR [Concomitant]
  13. SYNTHROID [Concomitant]
  14. VICODIN [Concomitant]
  15. VITAMIN D SUPPLEMENT [Concomitant]
  16. CLONAZEPAM [Concomitant]
  17. ADVAIR DISKUS 100/50 [Concomitant]
  18. VENTOLIN [Concomitant]
  19. FLONASE [Concomitant]
  20. EXCEDRIN (MIGRAINE) [Concomitant]
  21. AMYZOL [Concomitant]

REACTIONS (1)
  - DRUG INEFFECTIVE [None]
